FAERS Safety Report 24880663 (Version 4)
Quarter: 2025Q1

REPORT INFORMATION
  Report Type: Spontaneous
  Country: US (occurrence: US)
  Receive Date: 20250123
  Receipt Date: 20250320
  Transmission Date: 20250409
  Serious: No
  Sender: SANOFI AVENTIS
  Company Number: US-SA-2025SA021874

PATIENT
  Age: 7 Year
  Sex: Male
  Weight: 28.2 kg

DRUGS (1)
  1. XENPOZYME [Suspect]
     Active Substance: OLIPUDASE ALFA-RPCP
     Indication: Niemann-Pick disease
     Dosage: 70 MG, QOW
     Route: 042
     Dates: start: 20230109

REACTIONS (1)
  - No adverse event [Unknown]
